FAERS Safety Report 11939579 (Version 1)
Quarter: 2016Q1

REPORT INFORMATION
  Report Type: Spontaneous
  Country: US (occurrence: US)
  Receive Date: 20160122
  Receipt Date: 20160122
  Transmission Date: 20160526
  Serious: No
  Sender: FDA-Public Use
  Company Number: US-PFIZER INC-2016025689

PATIENT
  Age: 54 Year
  Sex: Female
  Weight: 133.33 kg

DRUGS (12)
  1. LORAZEPAM. [Concomitant]
     Active Substance: LORAZEPAM
     Dosage: 0.5 MG, 3X/DAY
     Route: 048
     Dates: start: 20150819
  2. MECLIZINE HCL [Concomitant]
     Dosage: 25 MG, AS NEEDED (THREE TIMES DAILY AS NEEDED)
     Route: 048
  3. QUETIAPINE FUMARATE. [Concomitant]
     Active Substance: QUETIAPINE FUMARATE
     Dosage: 300 MG, DAILY (50 MG TABLET IN MORNING, 50MG TABLET IN AFTERNOON, 200MG TABLET AT BEDTIME)
     Route: 048
  4. ROSUVASTATIN CALCIUM. [Concomitant]
     Active Substance: ROSUVASTATIN CALCIUM
     Dosage: 20 MG, 1X/DAY
     Route: 048
  5. CLONIDINE HCL [Concomitant]
     Active Substance: CLONIDINE HYDROCHLORIDE
     Dosage: 0.1 MG, 1X/DAY (1 TABLET AT BEDTIME)
     Route: 048
  6. LISINOPRIL. [Concomitant]
     Active Substance: LISINOPRIL
     Dosage: 40 MG, 1X/DAY
     Route: 048
  7. CORTISPORIN OTIC [Concomitant]
     Dosage: (1%-0.35 %-1000 UNITS/ML SUSPENSIONS), 2X/DAY (2-5 (DROPS INTO EACH AFFECTED EAR TWICE A DAY)
     Dates: start: 20150909
  8. CYCLOBENZAPRIN HCL [Concomitant]
     Active Substance: CYCLOBENZAPRINE HYDROCHLORIDE
     Dosage: 10 MG, 3X/DAY
     Route: 048
     Dates: start: 20160104
  9. LYRICA [Suspect]
     Active Substance: PREGABALIN
     Indication: PARAESTHESIA
     Dosage: 25 MG, 3X/DAY
     Route: 048
     Dates: start: 20151221
  10. VENLAFAXINE HCL [Concomitant]
     Active Substance: VENLAFAXINE HYDROCHLORIDE
     Dosage: 150 MG, 1X/DAY (1 CAPSULE WITH FOOD ORALLY ONCE A DAY)
     Dates: start: 20150819
  11. RANITIDINE HCL [Concomitant]
     Active Substance: RANITIDINE HYDROCHLORIDE
     Dosage: 150 MG, 2X/DAY
     Route: 048
  12. FUROSEMIDE. [Concomitant]
     Active Substance: FUROSEMIDE
     Dosage: 40 MG, 2X/DAY
     Route: 048

REACTIONS (2)
  - Body mass index increased [Unknown]
  - Folate deficiency [Unknown]

NARRATIVE: CASE EVENT DATE: 20151222
